FAERS Safety Report 17564343 (Version 5)
Quarter: 2021Q4

REPORT INFORMATION
  Report Type: Spontaneous
  Country: US (occurrence: US)
  Receive Date: 20200320
  Receipt Date: 20211008
  Transmission Date: 20220303
  Serious: Yes (Hospitalization, Other)
  Sender: FDA-Public Use
  Company Number: US-BOEHRINGERINGELHEIM-2020-BI-015500

PATIENT
  Age: 56 Year
  Sex: Male
  Weight: 93.8 kg

DRUGS (28)
  1. JARDIANCE [Suspect]
     Active Substance: EMPAGLIFLOZIN
     Indication: Type 2 diabetes mellitus
     Dosage: 25 MG BY MOUTH DAILY,
     Route: 048
     Dates: start: 20180505
  2. ECOTRIN [Concomitant]
     Active Substance: ASPIRIN
     Indication: Product used for unknown indication
     Dosage: 1 TABLET BY MOUTH DAILY
     Route: 048
     Dates: start: 20171228, end: 20190119
  3. LIPITOR [Concomitant]
     Active Substance: ATORVASTATIN CALCIUM
     Indication: Product used for unknown indication
     Dosage: TAKE 40 MG BY MOUTH EVERY EVENING.
     Route: 048
     Dates: end: 20190118
  4. LEXAPRO [Concomitant]
     Active Substance: ESCITALOPRAM OXALATE
     Indication: Product used for unknown indication
     Dosage: 10 MG BY MOUTH 2 (TWO) TIMES DAILY
     Route: 048
  5. NEURONTIN [Concomitant]
     Active Substance: GABAPENTIN
     Indication: Product used for unknown indication
     Dosage: TAKE 600 MG BY MOUTH 3 (THREE) TIMES DAILY
     Route: 048
  6. NOVOLOG [Concomitant]
     Active Substance: INSULIN ASPART
     Indication: Product used for unknown indication
     Dosage: INJECT 20 UNITS INTO THE SKIN 3 TIMES DAILY BEFORE MEALS
     Route: 058
     Dates: start: 20141204
  7. NOVOLOG [Concomitant]
     Active Substance: INSULIN ASPART
     Route: 065
  8. TRESIBA [Concomitant]
     Active Substance: INSULIN DEGLUDEC
     Indication: Product used for unknown indication
     Dosage: INJECT 60 UNITS INTO THE SKIN 2 (TWO) TIMES DAILY.
     Route: 058
  9. LISINOPRIL [Concomitant]
     Active Substance: LISINOPRIL
     Indication: Product used for unknown indication
     Dosage: 20 MG BY MOUTH DAILY AS NEEDED (BP)
     Route: 048
  10. TOPROL XL [Concomitant]
     Active Substance: METOPROLOL SUCCINATE
     Indication: Hypertension
     Dosage: 50 MG BY?MOUTH DAILY
     Route: 048
  11. LOVAZA [Concomitant]
     Active Substance: OMEGA-3-ACID ETHYL ESTERS
     Indication: Product used for unknown indication
     Dosage: TAKE 2 G BY?MOUTH 2 (TWO)?TIMES DAILY.
     Route: 048
  12. PERCOCET [Concomitant]
     Active Substance: ACETAMINOPHEN\OXYCODONE HYDROCHLORIDE
     Indication: Pain
     Dosage: 1 TABLET BY?MOUTH EVERY 4?(FOUR) HOURS AS?NEEDED FOR?PAIN??10-325 MILLIGRAM
     Route: 048
  13. PROTONIX [Concomitant]
     Active Substance: PANTOPRAZOLE SODIUM
     Indication: Product used for unknown indication
     Dosage: 1 TABLET BY?MOUTH 2 (TWO)?TIMES DAILY?BEFORE MEALS/BREAKFAST?FOR 30 DAYS
     Route: 048
     Dates: start: 20190228, end: 20190330
  14. RANEXA [Concomitant]
     Active Substance: RANOLAZINE
     Indication: Product used for unknown indication
     Dosage: 500 MG BY?MOUTH 2 (TWO)?TIMES DAILY
     Route: 048
  15. CARAFATE [Concomitant]
     Active Substance: SUCRALFATE
     Indication: Product used for unknown indication
     Dosage: 1 TABLET BY?MOUTH 4 (FOUR)?TIMES DAILY?BEFORE MEALS?AND NIGHTLY FOR?30 DAYS
     Route: 048
  16. THERAGRAN [ASCORBIC ACID;CALCIUM PANTOTHENATE;CYANOCOBALAMIN;ERGOCALCI [Concomitant]
     Indication: Product used for unknown indication
     Dosage: TAKE 1 TABLET BY MOUTH DAILY.
     Route: 048
  17. ALBUTEROL [Concomitant]
     Active Substance: ALBUTEROL
     Indication: Wheezing
     Dosage: 2 PUFFS INTO THE LUNGS EVERY 4 (FOUR) HOURS AS NEEDED FOR WHEEZING OR SHORTNESS OF BREATH?90 MCG/ACT
     Route: 065
     Dates: start: 20171227
  18. ALBUTEROL [Concomitant]
     Active Substance: ALBUTEROL
     Indication: Dyspnoea
  19. DELTASONE [Concomitant]
     Active Substance: PREDNISONE
     Indication: Rheumatoid arthritis
     Dosage: 10 MG BY MOUTH 3 (THREE) TIMES DAILY AS NEEDED (RHEUMATOID ARTHRITIS)
     Route: 048
  20. DELTASONE [Concomitant]
     Active Substance: PREDNISONE
     Indication: Pain
  21. PLAVIX [Concomitant]
     Active Substance: CLOPIDOGREL BISULFATE
     Indication: Product used for unknown indication
     Dosage: 1 TABLET BY MOUTH DAILY FOR 30 DAYS
     Route: 048
  22. IMDUR [Concomitant]
     Active Substance: ISOSORBIDE MONONITRATE
     Indication: Product used for unknown indication
     Dosage: 1 TABLET BY MOUTH DAILY FOR 30 DAYS,
     Route: 048
  23. ZOFRAN [Concomitant]
     Active Substance: ONDANSETRON HYDROCHLORIDE
     Indication: Nausea
     Dosage: 1 TABLET BY MOUTH EVERY 8 (EIGHT) HOURS AS NEEDED FOR NAUSEA FOR UP TO 7 DAYS,
     Route: 048
  24. FERROUS SULFATE [Concomitant]
     Active Substance: FERROUS SULFATE
     Indication: Product used for unknown indication
     Dosage: 1 TABLET BY MOUTH DAILY WITH BREAKFAST,
     Route: 048
  25. EFFIENT [Concomitant]
     Active Substance: PRASUGREL HYDROCHLORIDE
     Indication: Product used for unknown indication
     Route: 048
  26. NEXIUM I.V. [Concomitant]
     Active Substance: ESOMEPRAZOLE SODIUM
     Dosage: 1 CAPSULE Y MOTH 2 TIMES DAILY BEFORE MEALS, TAKE 45 MIN BEFORE BOTH MEALS
     Route: 048
  27. LANTUS [Concomitant]
     Active Substance: INSULIN GLARGINE
     Indication: Type 2 diabetes mellitus
     Route: 065
  28. CLINDAMYCIN HYDROCHLORIDE [Concomitant]
     Active Substance: CLINDAMYCIN HYDROCHLORIDE
     Dosage: 1 CAPSULE BY MOUTH 3 TIMES DAILY FOR 7 DAYS
     Route: 048

REACTIONS (2)
  - Fournier^s gangrene [Unknown]
  - Gas gangrene [Unknown]

NARRATIVE: CASE EVENT DATE: 20190316
